FAERS Safety Report 7107382-0 (Version None)
Quarter: 2010Q4

REPORT INFORMATION
  Report Type: 
  Country: None (occurrence: None)
  Receive Date: 20101112
  Receipt Date: 20101112
  Transmission Date: 20110411
  Serious: Yes (Other)
  Sender: FDA-Public Use
  Company Number: None

PATIENT
  Age: 60 Year
  Sex: Female
  Weight: 60 kg

DRUGS (2)
  1. CARBOPLATIN [Suspect]
     Indication: BREAST CANCER
     Dosage: 159 MG Q WEEK X 12 IV
     Route: 042
     Dates: start: 20100715, end: 20101014
  2. ABRAXANE [Suspect]
     Dosage: 142 MG Q WEEK X 12 IV
     Route: 042
     Dates: start: 20100715, end: 20101014

REACTIONS (3)
  - FATIGUE [None]
  - MUSCULAR WEAKNESS [None]
  - POLYMYOSITIS [None]
